FAERS Safety Report 23276967 (Version 1)
Quarter: 2023Q4

REPORT INFORMATION
  Report Type: Spontaneous
  Country: IT (occurrence: IT)
  Receive Date: 20231208
  Receipt Date: 20231208
  Transmission Date: 20240110
  Serious: Yes (Death, Life-Threatening, Other)
  Sender: FDA-Public Use
  Company Number: IT-Accord-394049

PATIENT
  Age: 56 Year
  Sex: Male
  Weight: 73 kg

DRUGS (6)
  1. AMLODIPINE [Interacting]
     Active Substance: AMLODIPINE BESYLATE
     Indication: Product used for unknown indication
     Dosage: TOTAL, 1 BOTTLE AML, 14 TAB./BOTTLE AT 10 MG EACH)
  2. DOXAZOSIN [Interacting]
     Active Substance: DOXAZOSIN MESYLATE
     Indication: Product used for unknown indication
     Dosage: TOTAL, 2ND BOTTLE OF DOX (20 TABLETS/BOTTLE AT 4 MG EACH)
  3. CARVEDILOL [Interacting]
     Active Substance: CARVEDILOL
     Indication: Product used for unknown indication
     Dosage: TOTAL, 2 BOTTLES CRVD-30 TABLETS/BOTTLE AT 25 MG EACH)
  4. CLONAZEPAM [Concomitant]
     Active Substance: CLONAZEPAM
  5. LACOSAMIDE [Concomitant]
     Active Substance: LACOSAMIDE
  6. DOXAZOSIN [Interacting]
     Active Substance: DOXAZOSIN MESYLATE
     Indication: Completed suicide
     Dosage: 30 TABLETS PER BOTTLE AT 2 MG EACH

REACTIONS (9)
  - Brain oedema [Fatal]
  - Pulmonary oedema [Fatal]
  - Petechiae [Fatal]
  - Coronary artery stenosis [Fatal]
  - Intentional overdose [Fatal]
  - Arteriosclerosis coronary artery [Fatal]
  - Drug interaction [Fatal]
  - Visceral congestion [Fatal]
  - Myocardial fibrosis [Fatal]
